FAERS Safety Report 8075765-0 (Version None)
Quarter: 2012Q1

REPORT INFORMATION
  Report Type: 
  Country: None (occurrence: None)
  Receive Date: 20120127
  Receipt Date: 20120117
  Transmission Date: 20120608
  Serious: Yes (Hospitalization, Other)
  Sender: FDA-Public Use
  Company Number: DE-JNJFOC-20111208396

PATIENT
  Sex: Female
  Weight: 72 kg

DRUGS (15)
  1. ALVESCO [Concomitant]
  2. INSPRA [Concomitant]
  3. SPIRIVA [Concomitant]
  4. NEXIUM [Concomitant]
  5. AMIODARONE HCL [Concomitant]
  6. LEVOTHYROXINE SODIUM [Concomitant]
  7. PROCORALAN [Concomitant]
  8. TORSEMIDE [Concomitant]
  9. NEBIVOLOL HCL [Concomitant]
  10. PROGYNOVA [Concomitant]
  11. THYBON [Concomitant]
  12. ESCITALOPRAM [Concomitant]
  13. SAB SIMPLEX [Concomitant]
  14. XARELTO [Suspect]
     Indication: ATRIAL FIBRILLATION
     Route: 065
  15. ESIDRIX [Concomitant]

REACTIONS (3)
  - LEUKOCYTOCLASTIC VASCULITIS [None]
  - HAEMATURIA [None]
  - CLOSTRIDIUM TEST POSITIVE [None]
